FAERS Safety Report 9299039 (Version 1)
Quarter: 2013Q2

REPORT INFORMATION
  Report Type: Spontaneous
  Country: US (occurrence: US)
  Receive Date: 20130520
  Receipt Date: 20130520
  Transmission Date: 20140414
  Serious: Yes (Other)
  Sender: FDA-Public Use
  Company Number: US-ABBOTT-13P-163-1089534-00

PATIENT
  Sex: Female
  Weight: 77.63 kg

DRUGS (2)
  1. SYNTHROID [Suspect]
     Indication: HYPOTHYROIDISM
  2. TIROSINT [Suspect]
     Indication: HYPOTHYROIDISM
     Route: 048
     Dates: start: 201301

REACTIONS (19)
  - Cataract operation [Unknown]
  - Eye disorder [Unknown]
  - Pain [Unknown]
  - Blood pressure inadequately controlled [Unknown]
  - Headache [Unknown]
  - Arthralgia [Unknown]
  - Pain in jaw [Unknown]
  - Dysphagia [Unknown]
  - Gastric disorder [Unknown]
  - Alopecia [Unknown]
  - Headache [Unknown]
  - Middle insomnia [Unknown]
  - Chest pain [Unknown]
  - Exophthalmos [Unknown]
  - Wound [Unknown]
  - Otorrhoea [Unknown]
  - Staphylococcal infection [Unknown]
  - Back pain [Unknown]
  - Sensation of foreign body [Unknown]
